FAERS Safety Report 18418816 (Version 3)
Quarter: 2020Q4

REPORT INFORMATION
  Report Type: Spontaneous
  Country: NL (occurrence: NL)
  Receive Date: 20201023
  Receipt Date: 20201113
  Transmission Date: 20210114
  Serious: Yes (Other)
  Sender: FDA-Public Use
  Company Number: NL-ELI_LILLY_AND_COMPANY-NL202010008444

PATIENT
  Sex: Male
  Weight: 65 kg

DRUGS (1)
  1. FORSTEO 250UG/ML [Suspect]
     Active Substance: TERIPARATIDE
     Indication: OSTEOPOROSIS
     Dosage: 1D1INJ
     Route: 065
     Dates: start: 20190501, end: 20200710

REACTIONS (1)
  - Oesophageal cancer metastatic [Unknown]
